FAERS Safety Report 11591502 (Version 1)
Quarter: 2015Q4

REPORT INFORMATION
  Report Type: Spontaneous
  Country: US (occurrence: US)
  Receive Date: 20151005
  Receipt Date: 20151005
  Transmission Date: 20160304
  Serious: No
  Sender: FDA-Public Use
  Company Number: US-PAR PHARMACEUTICAL, INC-2015SCPR013963

PATIENT

DRUGS (2)
  1. ADRENALIN [Suspect]
     Active Substance: EPINEPHRINE
     Indication: DRUG ADMINISTRATION ERROR
     Dosage: 0.25 ML, UNKNOWN
     Route: 058
     Dates: start: 20150506
  2. LIDOCAINE. [Suspect]
     Active Substance: LIDOCAINE
     Indication: DRUG ADMINISTRATION ERROR
     Dosage: UNK UNK, UNKNOWN
     Route: 058
     Dates: start: 20150506

REACTIONS (3)
  - Drug ineffective for unapproved indication [Unknown]
  - Drug administration error [Unknown]
  - Product quality issue [Unknown]

NARRATIVE: CASE EVENT DATE: 20150506
